FAERS Safety Report 8350881-4 (Version None)
Quarter: 2012Q2

REPORT INFORMATION
  Report Type: 
  Country: None (occurrence: None)
  Receive Date: 20120510
  Receipt Date: 20120426
  Transmission Date: 20120825
  Serious: Yes (Hospitalization)
  Sender: FDA-Public Use
  Company Number: CN-BAXTER-2012BAX004192

PATIENT
  Age: 48 Year
  Sex: Female
  Weight: 55 kg

DRUGS (3)
  1. VALSARTAN [Concomitant]
     Indication: HYPERTENSION
     Route: 048
     Dates: start: 20120413, end: 20120426
  2. LOW CALCIUM PERITONEAL DIALYSIS SOLUTION ( LACTATE- G1.5%) [Suspect]
     Indication: PERITONEAL DIALYSIS
     Route: 033
  3. NIFEDIPINE [Concomitant]
     Indication: HYPERTENSION
     Route: 048
     Dates: start: 20120413, end: 20120426

REACTIONS (2)
  - VASCULAR RUPTURE [None]
  - PERITONEAL HAEMORRHAGE [None]
